FAERS Safety Report 11336060 (Version 1)
Quarter: 2015Q3

REPORT INFORMATION
  Report Type: Spontaneous
  Country: JP (occurrence: JP)
  Receive Date: 20150804
  Receipt Date: 20150804
  Transmission Date: 20151125
  Serious: Yes (Other)
  Sender: FDA-Public Use
  Company Number: PHJP2015JP009232

PATIENT
  Age: 34 Year
  Sex: Female

DRUGS (12)
  1. NEORAL [Interacting]
     Active Substance: CYCLOSPORINE
     Indication: IMMUNOSUPPRESSION
  2. LORAZEPAM. [Suspect]
     Active Substance: LORAZEPAM
     Indication: ANXIETY
     Dosage: UNK
     Route: 048
  3. SULPIRIDE [Interacting]
     Active Substance: SULPIRIDE
     Indication: ANXIETY
     Dosage: UNK
     Route: 065
  4. CLOMIPRAMINE HYDROCHLORIDE. [Interacting]
     Active Substance: CLOMIPRAMINE HYDROCHLORIDE
     Indication: RESTLESSNESS
  5. SULPIRIDE [Interacting]
     Active Substance: SULPIRIDE
     Indication: RESTLESSNESS
  6. LORAZEPAM. [Interacting]
     Active Substance: LORAZEPAM
     Indication: DEPRESSION
  7. CLOMIPRAMINE HYDROCHLORIDE. [Interacting]
     Active Substance: CLOMIPRAMINE HYDROCHLORIDE
     Indication: DEPRESSION
  8. CELLCEPT [Concomitant]
     Active Substance: MYCOPHENOLATE MOFETIL\MYCOPHENOLATE MOFETIL HYDROCHLORIDE
     Indication: PRODUCT USED FOR UNKNOWN INDICATION
     Dosage: UNK
     Route: 065
  9. NEORAL [Interacting]
     Active Substance: CYCLOSPORINE
     Indication: RENAL TRANSPLANT
     Dosage: UNK
     Route: 048
  10. LORAZEPAM. [Interacting]
     Active Substance: LORAZEPAM
     Indication: RESTLESSNESS
  11. CLOMIPRAMINE HYDROCHLORIDE. [Interacting]
     Active Substance: CLOMIPRAMINE HYDROCHLORIDE
     Indication: ANXIETY
     Dosage: UNK
     Route: 065
  12. SULPIRIDE [Interacting]
     Active Substance: SULPIRIDE
     Indication: DEPRESSION

REACTIONS (7)
  - Immunosuppressant drug level increased [Recovered/Resolved]
  - Restlessness [Recovered/Resolved]
  - Drug interaction [Unknown]
  - Kidney transplant rejection [Recovered/Resolved]
  - Anxiety [Recovered/Resolved]
  - Self-induced vomiting [Unknown]
  - Decreased appetite [Unknown]
